FAERS Safety Report 6842902-2 (Version None)
Quarter: 2010Q3

REPORT INFORMATION
  Report Type: 
  Country: None (occurrence: None)
  Receive Date: 20100714
  Receipt Date: 20070809
  Transmission Date: 20110219
  Serious: No
  Sender: FDA-Public Use
  Company Number: US-PFIZER INC-2007066402

PATIENT
  Sex: Female
  Weight: 75 kg

DRUGS (8)
  1. CHANTIX [Suspect]
     Indication: SMOKING CESSATION THERAPY
     Dates: start: 20070806
  2. ACETYLSALICYLIC ACID [Concomitant]
  3. LISINOPRIL [Concomitant]
  4. CRESTOR [Concomitant]
  5. PAXIL [Concomitant]
  6. TOPROL-XL [Concomitant]
  7. TRICOR [Concomitant]
  8. NITROGLYCERIN [Concomitant]
     Route: 062

REACTIONS (1)
  - SOMNAMBULISM [None]
